FAERS Safety Report 7413672-4 (Version None)
Quarter: 2011Q2

REPORT INFORMATION
  Report Type: 
  Country: None (occurrence: None)
  Receive Date: 20110413
  Receipt Date: 20101109
  Transmission Date: 20111010
  Serious: Yes (Hospitalization, Other)
  Sender: FDA-Public Use
  Company Number: US-BAYER-201022661NA

PATIENT
  Age: 20 Year
  Sex: Female
  Weight: 70.295 kg

DRUGS (3)
  1. NSAID'S [Concomitant]
  2. YAZ [Suspect]
     Indication: ACNE
     Dates: start: 20071001, end: 20080201
  3. YASMIN [Suspect]
     Indication: PRODUCT USED FOR UNKNOWN INDICATION
     Dates: start: 20071001, end: 20080201

REACTIONS (2)
  - DEEP VEIN THROMBOSIS [None]
  - PULMONARY EMBOLISM [None]
